FAERS Safety Report 24540031 (Version 1)
Quarter: 2024Q4

REPORT INFORMATION
  Report Type: Spontaneous
  Country: US (occurrence: None)
  Receive Date: 20241023
  Receipt Date: 20241023
  Transmission Date: 20250115
  Serious: No
  Sender: Public
  Company Number: None

PATIENT
  Age: 73 Year
  Sex: Female
  Weight: 49.4 kg

DRUGS (2)
  1. DARATUMUMAB [Suspect]
     Active Substance: DARATUMUMAB
     Dates: end: 20240918
  2. LENALIDOMIDE [Suspect]
     Active Substance: LENALIDOMIDE
     Dates: end: 20241008

REACTIONS (4)
  - Anisomastia [None]
  - Breast calcifications [None]
  - Invasive ductal breast carcinoma [None]
  - Fibroadenoma of breast [None]

NARRATIVE: CASE EVENT DATE: 20241014
